FAERS Safety Report 19952425 (Version 1)
Quarter: 2021Q4

REPORT INFORMATION
  Report Type: Spontaneous
  Country: CA (occurrence: CA)
  Receive Date: 20211014
  Receipt Date: 20211014
  Transmission Date: 20220303
  Serious: Yes (Hospitalization)
  Sender: FDA-Public Use
  Company Number: CA-ROCHE-2932112

PATIENT
  Age: 78 Year
  Sex: Female

DRUGS (10)
  1. RITUXIMAB [Suspect]
     Active Substance: RITUXIMAB
     Indication: Rheumatoid arthritis
     Route: 041
  2. FOLIC ACID [Concomitant]
     Active Substance: FOLIC ACID
  3. INSULIN NOS [Concomitant]
     Active Substance: INSULIN NOS
  4. METFORMIN [Concomitant]
     Active Substance: METFORMIN HYDROCHLORIDE
  5. OMEGA-3 FATTY ACIDS [Concomitant]
     Active Substance: OMEGA-3 FATTY ACIDS
  6. RABEPRAZOLE SODIUM [Concomitant]
     Active Substance: RABEPRAZOLE SODIUM
  7. PREDNISONE [Concomitant]
     Active Substance: PREDNISONE
  8. RAMIPRIL [Concomitant]
     Active Substance: RAMIPRIL
  9. SYNTHROID [Concomitant]
     Active Substance: LEVOTHYROXINE SODIUM
  10. LINAGLIPTIN [Concomitant]
     Active Substance: LINAGLIPTIN

REACTIONS (4)
  - Folate deficiency [Unknown]
  - Hypertension [Unknown]
  - Magnesium deficiency [Unknown]
  - Pneumonia [Unknown]
